FAERS Safety Report 17621479 (Version 1)
Quarter: 2020Q2

REPORT INFORMATION
  Report Type: Spontaneous
  Country: US (occurrence: US)
  Receive Date: 20200403
  Receipt Date: 20200403
  Transmission Date: 20200713
  Serious: No
  Sender: FDA-Public Use
  Company Number: US-GALDERMA-US19074339

PATIENT
  Sex: Female

DRUGS (1)
  1. PROACTIV MD ADAPALENE ACNE TREATMENT [Suspect]
     Active Substance: ADAPALENE
     Indication: ACNE CYSTIC
     Dosage: 0.1%
     Route: 061
     Dates: start: 201907

REACTIONS (4)
  - Overdose [Recovered/Resolved]
  - Inappropriate schedule of product administration [Recovered/Resolved]
  - Drug ineffective [Unknown]
  - Condition aggravated [Unknown]

NARRATIVE: CASE EVENT DATE: 201907
